FAERS Safety Report 21177715 (Version 1)
Quarter: 2022Q3

REPORT INFORMATION
  Report Type: Spontaneous
  Country: US (occurrence: None)
  Receive Date: 20220805
  Receipt Date: 20220805
  Transmission Date: 20221027
  Serious: Yes (Hospitalization)
  Sender: FDA-Public Use
  Company Number: None

PATIENT
  Age: 48 Year
  Sex: Female
  Weight: 112 kg

DRUGS (1)
  1. YESCARTA [Suspect]
     Active Substance: AXICABTAGENE CILOLEUCEL
     Indication: Diffuse large B-cell lymphoma
     Dates: start: 20220613, end: 20220613

REACTIONS (3)
  - Lymphocyte adoptive therapy [None]
  - Febrile neutropenia [None]
  - Cytokine release syndrome [None]

NARRATIVE: CASE EVENT DATE: 20220613
